FAERS Safety Report 8423456-6 (Version None)
Quarter: 2012Q2

REPORT INFORMATION
  Report Type: 
  Country: None (occurrence: None)
  Receive Date: 20120608
  Receipt Date: 20120530
  Transmission Date: 20120825
  Serious: Yes (Other)
  Sender: FDA-Public Use
  Company Number: JP-VERTEX PHARMACEUTICALS INC.-AE-2012-008162

PATIENT
  Age: 70 Year
  Sex: Female

DRUGS (12)
  1. PEG-INTRON [Concomitant]
     Indication: HEPATITIS C
     Route: 051
     Dates: start: 20120404, end: 20120404
  2. URSO 250 [Concomitant]
     Route: 048
  3. REBETOL [Concomitant]
     Indication: HEPATITIS C
     Route: 048
     Dates: start: 20120404, end: 20120406
  4. PEG-INTRON [Concomitant]
     Route: 051
     Dates: start: 20120411
  5. SELBEX [Concomitant]
     Route: 048
  6. TELAVIC (TELAPREVIR) [Suspect]
     Indication: HEPATITIS C
     Route: 048
     Dates: start: 20120404, end: 20120406
  7. REBETOL [Concomitant]
     Route: 048
     Dates: start: 20120409
  8. PURSENNID [Concomitant]
     Route: 048
     Dates: start: 20120418, end: 20120516
  9. LOXONIN [Concomitant]
     Route: 048
  10. ISODINE [Concomitant]
     Route: 051
     Dates: start: 20120412
  11. MS ONSHIPPU [Concomitant]
     Route: 061
     Dates: start: 20120417
  12. ASPARA K [Concomitant]
     Route: 048

REACTIONS (1)
  - NEUTROPHIL COUNT DECREASED [None]
